FAERS Safety Report 15716941 (Version 1)
Quarter: 2018Q4

REPORT INFORMATION
  Report Type: Spontaneous
  Country: US (occurrence: US)
  Receive Date: 20181213
  Receipt Date: 20181213
  Transmission Date: 20190205
  Serious: No
  Sender: FDA-Public Use
  Company Number: US-PFIZER INC-2018503863

PATIENT
  Sex: Female

DRUGS (3)
  1. DEXTROMETHORPHAN POLISTIREX [Suspect]
     Active Substance: DEXTROMETHORPHAN HYDROBROMIDE
     Dosage: 30 MG, UNK
  2. CHILDRENS DELSYM COUGH PLUS CHEST CONGESTION DM [Suspect]
     Active Substance: DEXTROMETHORPHAN HYDROBROMIDE\GUAIFENESIN
     Dosage: 30 MG, UNK
  3. ADVIL [Suspect]
     Active Substance: IBUPROFEN
     Dosage: 400 MG, UNK (200 MG EACH TWO CAPSULES, EACH ONE IS 200 MG TWO CAPSULES MINIS)

REACTIONS (1)
  - Abdominal pain upper [Unknown]
